FAERS Safety Report 12610421 (Version 2)
Quarter: 2016Q4

REPORT INFORMATION
  Report Type: Spontaneous
  Country: IT (occurrence: IT)
  Receive Date: 20160801
  Receipt Date: 20161230
  Transmission Date: 20170207
  Serious: Yes (Hospitalization)
  Sender: FDA-Public Use
  Company Number: IT-009507513-1607ITA011686

PATIENT
  Age: 60 Year
  Sex: Male
  Weight: 89 kg

DRUGS (7)
  1. JANUMET [Suspect]
     Active Substance: METFORMIN HYDROCHLORIDE\SITAGLIPTIN PHOSPHATE
     Indication: DIABETES MELLITUS
     Dosage: 2 DOSE UNITS, DAILY
     Route: 048
     Dates: end: 2016
  2. DRAMION [Concomitant]
     Active Substance: GLICLAZIDE
     Dosage: 30 MG, UNKNOWN
     Route: 048
  3. METFONORM [Suspect]
     Active Substance: METFORMIN HYDROCHLORIDE
     Indication: DIABETES MELLITUS
     Dosage: 500 MG, DAILY
     Route: 048
     Dates: start: 2008, end: 2016
  4. TORVAST [Concomitant]
     Active Substance: ATORVASTATIN
     Dosage: 10 MG, UNK
     Route: 048
  5. LUCEN (ESOMEPRAZOLE SODIUM) [Concomitant]
     Dosage: 20 MG, UNK
     Route: 048
  6. TRIATEC HCT [Concomitant]
     Active Substance: HYDROCHLOROTHIAZIDE\RAMIPRIL
     Dosage: 1 DOSE UNIT, UNK
     Route: 048
  7. COMBISARTAN [Concomitant]
     Active Substance: HYDROCHLOROTHIAZIDE\VALSARTAN
     Dosage: 1 DOSE UNIT, UNK
     Route: 048

REACTIONS (4)
  - Renal replacement therapy [Recovered/Resolved with Sequelae]
  - Acute coronary syndrome [Recovered/Resolved with Sequelae]
  - Acute kidney injury [Recovered/Resolved with Sequelae]
  - Metabolic acidosis [Recovered/Resolved with Sequelae]

NARRATIVE: CASE EVENT DATE: 20160617
